FAERS Safety Report 6642744-7 (Version None)
Quarter: 2010Q1

REPORT INFORMATION
  Report Type: 
  Country: None (occurrence: None)
  Receive Date: 20100319
  Receipt Date: 20100308
  Transmission Date: 20100710
  Serious: Yes (Other)
  Sender: FDA-Public Use
  Company Number: JP-PFIZER INC-2010030962

PATIENT
  Age: 78 Year
  Sex: Female

DRUGS (10)
  1. XALATAN [Suspect]
     Route: 047
     Dates: start: 20100305
  2. BUFFERIN [Concomitant]
     Route: 048
  3. CALSLOT [Concomitant]
     Route: 048
  4. LIPITOR [Concomitant]
     Route: 048
  5. DEPAS [Concomitant]
     Route: 048
  6. HALCION [Concomitant]
     Route: 048
  7. MOHRUS [Concomitant]
  8. HYALEIN [Concomitant]
     Route: 047
  9. SANCOBA [Concomitant]
     Route: 047
  10. TAKA-DIASTASE [Concomitant]
     Route: 048

REACTIONS (2)
  - BLOOD PRESSURE INCREASED [None]
  - PALPITATIONS [None]
